FAERS Safety Report 22936412 (Version 2)
Quarter: 2023Q4

REPORT INFORMATION
  Report Type: Spontaneous
  Country: US (occurrence: US)
  Receive Date: 20230912
  Receipt Date: 20231006
  Transmission Date: 20240109
  Serious: No
  Sender: FDA-Public Use
  Company Number: US-MYLANLABS-2023M1090960

PATIENT
  Sex: Male

DRUGS (1)
  1. DILANTIN [Interacting]
     Active Substance: PHENYTOIN
     Indication: Product used for unknown indication
     Dosage: 125 MILLIGRAM, TID
     Route: 065

REACTIONS (3)
  - Adverse drug reaction [Recovering/Resolving]
  - Contraindicated product administered [Unknown]
  - Drug interaction [Unknown]
